FAERS Safety Report 4645852-5 (Version None)
Quarter: 2005Q2

REPORT INFORMATION
  Report Type: 
  Country: None (occurrence: None)
  Receive Date: 20050422
  Receipt Date: 20050422
  Transmission Date: 20051028
  Serious: No
  Sender: FDA-Public Use
  Company Number: None

PATIENT
  Age: 69 Year
  Sex: Female

DRUGS (1)
  1. DILAUDID [Suspect]
     Indication: PAIN
     Dosage: 4MG IV
     Route: 042

REACTIONS (6)
  - APNOEA [None]
  - BLOOD PH DECREASED [None]
  - PCO2 INCREASED [None]
  - PO2 DECREASED [None]
  - SEDATION [None]
  - SOMNOLENCE [None]
